FAERS Safety Report 8847602 (Version 2)
Quarter: 2012Q4

REPORT INFORMATION
  Report Type: 
  Country: US (occurrence: US)
  Receive Date: 20121018
  Receipt Date: 20121219
  Transmission Date: 20130627
  Serious: Yes (Hospitalization, Other)
  Sender: FDA-Public Use
  Company Number: US-ELI_LILLY_AND_COMPANY-US201210003784

PATIENT
  Age: 61 None
  Sex: Female
  Weight: 74.83 kg

DRUGS (11)
  1. HUMATROPE [Suspect]
     Indication: GROWTH HORMONE DEFICIENCY
     Dosage: 0.6 mg, qd
     Dates: start: 2002
  2. ALLEGRA [Concomitant]
     Dosage: 60 mg, tid
  3. VALTREX [Concomitant]
  4. PERCOCET                           /00867901/ [Concomitant]
     Dosage: UNK, prn
  5. BENICAR [Concomitant]
  6. CALCIUM [Concomitant]
     Dosage: 2000 mg, qd
  7. FLOMAX [Concomitant]
     Dosage: 600 mg, each evening
  8. SYNTHROID [Concomitant]
     Dosage: 0.125 mg, each morning
  9. VITAMIN D [Concomitant]
     Dosage: 1000 mg, bid
  10. FIBER [Concomitant]
     Dosage: UNK, bid
  11. BABY ASPIRIN [Concomitant]

REACTIONS (5)
  - Intracranial aneurysm [Recovered/Resolved]
  - Convulsion [Recovered/Resolved]
  - Staphylococcal infection [Recovered/Resolved]
  - Malaise [Recovered/Resolved]
  - Headache [Recovered/Resolved]
